FAERS Safety Report 9470498 (Version 5)
Quarter: 2014Q2

REPORT INFORMATION
  Report Type: Report from Study
  Country: US (occurrence: US)
  Receive Date: 20130822
  Receipt Date: 20140411
  Transmission Date: 20141212
  Serious: Yes (Death, Life-Threatening, Hospitalization)
  Sender: FDA-Public Use
  Company Number: US-009507513-1308USA009172

PATIENT
  Age: 58 Year
  Sex: Male
  Weight: 104 kg

DRUGS (14)
  1. VORINOSTAT [Suspect]
     Indication: ACUTE MYELOID LEUKAEMIA
     Dosage: 500MG (3X/DAY) PO ON DAYS 1-3 (DAILY DOSE= 1500MG), CYCLE 1; TOTAL DOSE THIS COURSE: 4500MG
     Route: 048
     Dates: start: 20130802, end: 20130805
  2. IDARUBICIN [Suspect]
     Indication: ACUTE MYELOID LEUKAEMIA
     Dosage: 12MG/M2/DAY IV OVER 15 MIN ON DAYS 4-6, CYCLE 1; TOTAL DOSE ADMINISTERED THIS COURSE: 81MG
     Route: 042
     Dates: start: 20130805, end: 20130807
  3. CYTARABINE [Suspect]
     Indication: ACUTE MYELOID LEUKAEMIA
     Dosage: 1500MG/M2/DAY CONTINUOUS IV INFUSION ON DAYS 4-7, CYCLE 1; TOTAL DOSE ADM THIS COURSE: 13600MG
     Route: 042
     Dates: start: 20130805, end: 20130808
  4. VITAMIN D (UNSPECIFIED) [Concomitant]
     Dosage: UNK
  5. ACYCLOVIR [Concomitant]
     Dosage: UNK
  6. ATENOLOL [Concomitant]
     Dosage: UNK
  7. FLUTICASONE PROPIONATE (+) SALMETEROL XINAFOATE [Concomitant]
     Dosage: UNK
  8. LINEZOLID [Concomitant]
     Dosage: UNK
  9. MEROPENEM [Concomitant]
     Dosage: UNK
  10. MICAFUNGIN [Concomitant]
     Dosage: UNK
  11. NEUPOGEN [Concomitant]
     Dosage: UNK
  12. NICOTINE [Concomitant]
     Dosage: UNK
  13. PANTOPRAZOLE [Concomitant]
     Dosage: UNK
  14. TIOTROPIUM BROMIDE [Concomitant]
     Dosage: UNK

REACTIONS (2)
  - Multi-organ failure [Fatal]
  - Respiratory failure [Recovering/Resolving]
